FAERS Safety Report 4846631-6 (Version None)
Quarter: 2005Q4

REPORT INFORMATION
  Report Type: 
  Country: None (occurrence: None)
  Receive Date: 20051202
  Receipt Date: 20041121
  Transmission Date: 20060501
  Serious: Yes (Other)
  Sender: FDA-Public Use
  Company Number: 2005JP001318

PATIENT
  Age: 3 Year
  Sex: Male

DRUGS (2)
  1. PROGRAF [Suspect]
     Indication: BONE MARROW TRANSPLANT
     Dates: start: 20040101, end: 20040101
  2. METHOTREXATE [Concomitant]

REACTIONS (5)
  - BONE MARROW FAILURE [None]
  - CARDIOMEGALY [None]
  - HISTIOCYTOSIS HAEMATOPHAGIC [None]
  - PERICARDIAL EFFUSION [None]
  - RASH ERYTHEMATOUS [None]
